FAERS Safety Report 4505021-6 (Version None)
Quarter: 2004Q4

REPORT INFORMATION
  Report Type: 
  Country: None (occurrence: None)
  Receive Date: 20041015
  Receipt Date: 20031022
  Transmission Date: 20050328
  Serious: Yes (Life-Threatening, Hospitalization, Other)
  Sender: FDA-Public Use
  Company Number: 2003113767

PATIENT
  Age: 58 Year
  Sex: Female
  Weight: 74.8435 kg

DRUGS (3)
  1. NEURONTIN [Suspect]
     Indication: BIPOLAR I DISORDER
     Dosage: ORAL
     Route: 048
  2. ANTIDEPRESSANTS (ANTIDEPRESSANTS) [Concomitant]
  3. ALL OTHER THERAPEUTIC PRODUCTS (ALL OTHER THERAPEUTIC PRODUCTS) [Concomitant]

REACTIONS (2)
  - AMNESIA [None]
  - SUICIDE ATTEMPT [None]
